FAERS Safety Report 16203641 (Version 1)
Quarter: 2019Q2

REPORT INFORMATION
  Report Type: Spontaneous
  Country: US (occurrence: US)
  Receive Date: 20190416
  Receipt Date: 20190416
  Transmission Date: 20190711
  Serious: Yes (Hospitalization, Other)
  Sender: FDA-Public Use
  Company Number: US-ELITE LABORATORIES INC.-2019ELT00009

PATIENT
  Age: 21 Month
  Sex: Male

DRUGS (1)
  1. METHADONE HYDROCHLORIDE. [Suspect]
     Active Substance: METHADONE HYDROCHLORIDE
     Route: 065

REACTIONS (8)
  - Congestive cardiomyopathy [Unknown]
  - Unresponsive to stimuli [Recovered/Resolved]
  - Superior sagittal sinus thrombosis [Unknown]
  - Cerebellar infarction [Unknown]
  - Hemiparesis [Not Recovered/Not Resolved]
  - Hydrocephalus [Unknown]
  - Encephalopathy [Unknown]
  - Dysphagia [Not Recovered/Not Resolved]
